FAERS Safety Report 7608331-9 (Version None)
Quarter: 2011Q3

REPORT INFORMATION
  Report Type: 
  Country: None (occurrence: None)
  Receive Date: 20110714
  Receipt Date: 20110706
  Transmission Date: 20111222
  Serious: Yes (Hospitalization, Other)
  Sender: FDA-Public Use
  Company Number: US-B.I. PHARMACEUTICALS,INC./RIDGEFIELD-2011-BP-17440PF

PATIENT
  Sex: Male

DRUGS (14)
  1. SPIRIVA [Suspect]
     Indication: CHRONIC OBSTRUCTIVE PULMONARY DISEASE
     Dosage: 36 MCG
     Route: 055
     Dates: start: 20100916
  2. NEXIUM [Concomitant]
  3. DRONEDARONE HCL [Suspect]
     Dosage: 400 MG
  4. NOVOLOG [Concomitant]
  5. WELCHOL [Concomitant]
  6. CRESTOR [Concomitant]
  7. VITAMIN D [Concomitant]
  8. ARICEPT [Concomitant]
  9. COUMADIN [Concomitant]
  10. ULTRAM [Concomitant]
  11. LEXAPRO [Concomitant]
  12. SYNTHROID [Concomitant]
  13. METOPROLOL SUCCINATE [Suspect]
     Dosage: 50 MG
  14. PLAVIX [Concomitant]

REACTIONS (4)
  - OXYGEN SATURATION DECREASED [None]
  - BRADYCARDIA [None]
  - ATRIAL FIBRILLATION [None]
  - LUNG DISORDER [None]
